FAERS Safety Report 6864892-9 (Version None)
Quarter: 2010Q3

REPORT INFORMATION
  Report Type: 
  Country: None (occurrence: None)
  Receive Date: 20100721
  Receipt Date: 20080414
  Transmission Date: 20110219
  Serious: No
  Sender: FDA-Public Use
  Company Number: US-PFIZER INC-2008030944

PATIENT
  Sex: Male
  Weight: 103.18 kg

DRUGS (5)
  1. CHANTIX [Suspect]
     Indication: SMOKING CESSATION THERAPY
     Dates: start: 20080331
  2. CYMBALTA [Concomitant]
  3. ATIVAN [Concomitant]
  4. ANTIHYPERTENSIVES [Concomitant]
  5. ZETIA [Concomitant]

REACTIONS (3)
  - DEPRESSED MOOD [None]
  - FATIGUE [None]
  - POOR QUALITY SLEEP [None]
